FAERS Safety Report 17483742 (Version 5)
Quarter: 2022Q2

REPORT INFORMATION
  Report Type: Other
  Country: US (occurrence: None)
  Receive Date: 20200302
  Receipt Date: 20220506
  Transmission Date: 20220721
  Serious: Yes (Hospitalization, Other)
  Sender: FDA-Public Use
  Company Number: US-ROCHE-2556091

PATIENT
  Age: 61 Year
  Sex: Female
  Weight: 65.8 kg

DRUGS (3)
  1. OCREVUS [Suspect]
     Active Substance: OCRELIZUMAB
     Indication: Primary progressive multiple sclerosis
     Dosage: DATE OF TREATMENT: 17/JUL/2017, 31/JUL/2017, 31/JAN/2018, 31/JUL/2018, 15/FEB/2019, 22/AUG/2019, 17/
     Route: 042
     Dates: start: 20190215
  2. OCREVUS [Suspect]
     Active Substance: OCRELIZUMAB
     Route: 042
  3. GABAPENTIN [Concomitant]
     Active Substance: GABAPENTIN
     Indication: Neuralgia

REACTIONS (4)
  - Muscular weakness [Unknown]
  - Urinary tract infection [Unknown]
  - Sepsis [Unknown]
  - Hypertension [Unknown]

NARRATIVE: CASE EVENT DATE: 20200101
